FAERS Safety Report 16751196 (Version 1)
Quarter: 2019Q3

REPORT INFORMATION
  Report Type: Spontaneous
  Country: US (occurrence: US)
  Receive Date: 20190828
  Receipt Date: 20190828
  Transmission Date: 20191005
  Serious: No
  Sender: FDA-Public Use
  Company Number: US-BAYER-2019-153388

PATIENT
  Age: 70 Year
  Sex: Female
  Weight: 116 kg

DRUGS (4)
  1. HERBALAX [SENNA ALEXANDRINA POWDER;SENNA SPP.] [Concomitant]
     Route: 048
  2. MIRALAX [Suspect]
     Active Substance: POLYETHYLENE GLYCOL 3350
     Route: 048
     Dates: start: 201907
  3. PHILLIPS^ LAXATIVE DIETARY SUPPLEMENT [Suspect]
     Active Substance: MAGNESIUM OXIDE
     Dosage: 3 DF, ONCE
     Route: 048
     Dates: start: 20190818, end: 20190818
  4. PHILLIPS^ LAXATIVE DIETARY SUPPLEMENT [Suspect]
     Active Substance: MAGNESIUM OXIDE
     Dosage: UNK UNK, QD

REACTIONS (3)
  - Abdominal distension [Unknown]
  - Drug ineffective [Unknown]
  - Drug ineffective [Unknown]

NARRATIVE: CASE EVENT DATE: 201907
